FAERS Safety Report 7338036-3 (Version None)
Quarter: 2011Q1

REPORT INFORMATION
  Report Type: 
  Country: None (occurrence: None)
  Receive Date: 20110308
  Receipt Date: 20110222
  Transmission Date: 20110831
  Serious: Yes (Other)
  Sender: FDA-Public Use
  Company Number: PHHY2010KR07223

PATIENT
  Sex: Female

DRUGS (2)
  1. IMMUNOSUPPRESSANTS [Concomitant]
  2. ZOMETA [Suspect]
     Indication: OSTEOPOROSIS
     Dosage: UNK
     Route: 042
     Dates: start: 20100128

REACTIONS (3)
  - PAIN IN JAW [None]
  - ORAL PAIN [None]
  - ORAL MUCOSAL EXFOLIATION [None]
